FAERS Safety Report 24560695 (Version 2)
Quarter: 2024Q4

REPORT INFORMATION
  Report Type: Spontaneous
  Country: BE (occurrence: BE)
  Receive Date: 20241029
  Receipt Date: 20241113
  Transmission Date: 20250115
  Serious: Yes (Hospitalization, Other)
  Sender: AUROBINDO
  Company Number: BE-ACTAVIS-0457-2

PATIENT
  Age: 61 Year
  Sex: Female

DRUGS (10)
  1. IBUPROFEN [Interacting]
     Active Substance: IBUPROFEN
     Indication: Procedural pain
     Dosage: UNKNOWN
     Route: 065
  2. LITHIUM CARBONATE [Interacting]
     Active Substance: LITHIUM CARBONATE
     Indication: Bipolar disorder
     Dosage: 750 MILLIGRAM, ONCE A DAY
     Route: 065
  3. LITHIUM CARBONATE [Interacting]
     Active Substance: LITHIUM CARBONATE
     Indication: Bipolar disorder
     Dosage: 250 MG, TID
     Route: 065
  4. VOLTAREN [Interacting]
     Active Substance: DICLOFENAC SODIUM
     Indication: Procedural pain
     Dosage: 75 MILLIGRAM, ONCE A DAY
     Route: 065
  5. SERTRALINE HYDROCHLORIDE [Concomitant]
     Active Substance: SERTRALINE HYDROCHLORIDE
     Indication: Product used for unknown indication
     Dosage: 100 MG, UNKNOWN
     Route: 065
  6. ZYPREXA [Concomitant]
     Active Substance: OLANZAPINE
     Indication: Product used for unknown indication
     Dosage: 2.5 MG, UNKNOWN
     Route: 065
  7. TRAZODONE [Concomitant]
     Active Substance: TRAZODONE HYDROCHLORIDE
     Indication: Product used for unknown indication
     Dosage: 100 MG, UNKNOWN
     Route: 065
  8. Temesta [Concomitant]
     Indication: Product used for unknown indication
     Dosage: 2.5 MG, UNKNOWN
     Route: 065
  9. FENOGAL LIDOSE [Concomitant]
     Indication: Product used for unknown indication
     Dosage: 267 MG, UNKNOWN
     Route: 065
  10. INSULIN ASPART [Concomitant]
     Active Substance: INSULIN ASPART
     Indication: Type 2 diabetes mellitus
     Dosage: UNKNOWN
     Route: 065

REACTIONS (23)
  - Coma [Recovered/Resolved]
  - Acute kidney injury [Recovered/Resolved]
  - Hypoglycaemia [Recovered/Resolved]
  - Hyperglycaemia [Recovered/Resolved]
  - Agitation [Recovered/Resolved]
  - Hypercalcaemia [Recovered/Resolved]
  - Hyperreflexia [Recovered/Resolved]
  - Drug level above therapeutic [Recovered/Resolved]
  - Loss of consciousness [Recovered/Resolved]
  - Restlessness [Recovered/Resolved]
  - Dehydration [Recovered/Resolved]
  - Diabetes mellitus inadequate control [Recovered/Resolved]
  - Blood glucose fluctuation [Recovered/Resolved]
  - Toxicity to various agents [Recovered/Resolved]
  - Oliguria [Recovered/Resolved]
  - Blood urea increased [Recovered/Resolved]
  - Blood osmolarity increased [Recovered/Resolved]
  - Depressed level of consciousness [Recovered/Resolved]
  - Blood creatinine increased [Recovered/Resolved]
  - Body temperature increased [Recovered/Resolved]
  - Haemoglobin decreased [Recovered/Resolved]
  - Blood sodium increased [Recovered/Resolved]
  - Drug interaction [Recovered/Resolved]
